FAERS Safety Report 7467036-8 (Version None)
Quarter: 2011Q2

REPORT INFORMATION
  Report Type: 
  Country: None (occurrence: None)
  Receive Date: 20110509
  Receipt Date: 20110504
  Transmission Date: 20111010
  Serious: Yes (Other)
  Sender: FDA-Public Use
  Company Number: BR-ABBOTT-10P-020-0679124-00

PATIENT
  Sex: Female
  Weight: 52 kg

DRUGS (4)
  1. HUMIRA [Suspect]
     Route: 058
     Dates: start: 20101201
  2. HUMIRA [Suspect]
     Indication: RHEUMATOID ARTHRITIS
     Route: 058
     Dates: start: 20090101, end: 20100101
  3. REUQUINOL [Concomitant]
     Indication: PAIN
     Route: 048
     Dates: start: 20000101
  4. CELEBREX [Concomitant]
     Indication: PAIN
     Route: 048
     Dates: start: 20040101

REACTIONS (7)
  - ARTHRITIS [None]
  - NECK PAIN [None]
  - PAIN IN EXTREMITY [None]
  - NUCHAL RIGIDITY [None]
  - ANAEMIA [None]
  - MUSCLE RIGIDITY [None]
  - ARTHRALGIA [None]
